FAERS Safety Report 7017923-X (Version None)
Quarter: 2010Q3

REPORT INFORMATION
  Report Type: 
  Country: None (occurrence: None)
  Receive Date: 20100922
  Receipt Date: 20100913
  Transmission Date: 20110219
  Serious: Yes (Other)
  Sender: FDA-Public Use
  Company Number: 007012

PATIENT
  Sex: Female
  Weight: 56 kg

DRUGS (2)
  1. KEPPRA [Suspect]
     Indication: EPILEPSY
     Dosage: 1000 MG BID, STARTED WHEN PATIENT WAS 8 WEEKS PREGNANT, ORAL; 750 MG BID, ORAL
     Route: 048
     Dates: start: 20090101, end: 20090101
  2. KEPPRA [Suspect]
     Indication: EPILEPSY
     Dosage: 1000 MG BID, STARTED WHEN PATIENT WAS 8 WEEKS PREGNANT, ORAL; 750 MG BID, ORAL
     Route: 048
     Dates: start: 20091013

REACTIONS (2)
  - CAESAREAN SECTION [None]
  - DRUG EXPOSURE DURING PREGNANCY [None]
